FAERS Safety Report 5826753-3 (Version None)
Quarter: 2008Q3

REPORT INFORMATION
  Report Type: 
  Country: None (occurrence: None)
  Receive Date: 20080730
  Receipt Date: 20080715
  Transmission Date: 20090109
  Serious: Yes (Hospitalization)
  Sender: FDA-Public Use
  Company Number: PHHO2008JP08398

PATIENT
  Sex: Male
  Weight: 74 kg

DRUGS (10)
  1. EXELON EXELON+TDP [Suspect]
     Indication: DEMENTIA ALZHEIMER'S TYPE
     Dosage: UNK
     Route: 062
     Dates: start: 20080312
  2. ASPIRIN [Concomitant]
     Indication: PROPHYLAXIS
  3. NU LOTAN [Concomitant]
     Indication: HYPERTENSION
  4. PLETAL [Concomitant]
     Indication: PROPHYLAXIS
  5. FAMOTIDINE [Concomitant]
     Indication: PROPHYLAXIS
  6. LIPITOR [Concomitant]
     Indication: HYPERLIPIDAEMIA
  7. SIGMART [Concomitant]
     Indication: ANGINA PECTORIS
  8. MILTAX [Concomitant]
     Indication: INTERVERTEBRAL DISC PROTRUSION
  9. LOXONIN [Concomitant]
     Indication: INTERVERTEBRAL DISC PROTRUSION
  10. ALLOPURINOL [Concomitant]
     Indication: GOUT

REACTIONS (13)
  - ACUTE CORONARY SYNDROME [None]
  - ANGINA UNSTABLE [None]
  - ANGIOPLASTY [None]
  - CATHETERISATION CARDIAC [None]
  - CHEST DISCOMFORT [None]
  - CHEST PAIN [None]
  - CORONARY ARTERY DISEASE [None]
  - ELECTROCARDIOGRAM T WAVE INVERSION [None]
  - INTENSIVE CARE [None]
  - MYOCARDIAL INFARCTION [None]
  - PERCUTANEOUS CORONARY INTERVENTION [None]
  - RESTLESSNESS [None]
  - TROPONIN T [None]
